FAERS Safety Report 5590833-0 (Version None)
Quarter: 2008Q1

REPORT INFORMATION
  Report Type: 
  Country: None (occurrence: None)
  Receive Date: 20080110
  Receipt Date: 20071231
  Transmission Date: 20080703
  Serious: Yes (Other)
  Sender: FDA-Public Use
  Company Number: GXKR2007GB11030

PATIENT
  Age: 76 Year
  Sex: Male
  Weight: 67 kg

DRUGS (10)
  1. METRONIDAZOLE [Suspect]
     Indication: DIVERTICULITIS
     Dosage: 400 MG, TID, ORAL
     Route: 048
     Dates: start: 20071128, end: 20071202
  2. AMOXICILLIN TRIHYDRATE [Concomitant]
  3. CEPHALEXIN [Concomitant]
  4. CIPROFLOXACIN [Concomitant]
  5. FELODIPINE [Concomitant]
  6. FOLIC ACID [Concomitant]
  7. HYPROMELLOSE (HYPROMELLOSE) [Concomitant]
  8. LATANOPROST [Concomitant]
  9. MAGNESIUM TRISILICATE (MAGNESIUM TRISILICATE) [Concomitant]
  10. RAMIPRIL [Concomitant]

REACTIONS (2)
  - DISTURBANCE IN ATTENTION [None]
  - DYSGRAPHIA [None]
